FAERS Safety Report 17134117 (Version 3)
Quarter: 2019Q4

REPORT INFORMATION
  Report Type: Report from Study
  Country: US (occurrence: US)
  Receive Date: 20191210
  Receipt Date: 20191230
  Transmission Date: 20200122
  Serious: Yes (Other)
  Sender: FDA-Public Use
  Company Number: US-GLAXOSMITHKLINE-US2019TSO215119

PATIENT
  Sex: Female
  Weight: 77.01 kg

DRUGS (2)
  1. NIRAPARIB [Suspect]
     Active Substance: NIRAPARIB
     Indication: OVARIAN CANCER
     Dosage: 300 MG, QD
     Route: 048
     Dates: start: 20191111
  2. NIRAPARIB [Suspect]
     Active Substance: NIRAPARIB
     Dosage: 300 MG, EVENING WITH FOOD
     Route: 048

REACTIONS (3)
  - Blood magnesium decreased [Not Recovered/Not Resolved]
  - Epistaxis [Unknown]
  - Blood count abnormal [Not Recovered/Not Resolved]
